FAERS Safety Report 5086827-4 (Version None)
Quarter: 2006Q3

REPORT INFORMATION
  Report Type: 
  Country: None (occurrence: None)
  Receive Date: 20060823
  Receipt Date: 20060818
  Transmission Date: 20061208
  Serious: Yes (Other)
  Sender: FDA-Public Use
  Company Number: JP-BOEHRINGER INGELHEIM PHARMACEUTICALS, INC.-2006-BP-09717NB

PATIENT

DRUGS (1)
  1. MOBIC [Suspect]
     Route: 048

REACTIONS (1)
  - HAEMOLYTIC ANAEMIA [None]
